FAERS Safety Report 7145252-2 (Version None)
Quarter: 2010Q4

REPORT INFORMATION
  Report Type: 
  Country: None (occurrence: None)
  Receive Date: 20101208
  Receipt Date: 20101129
  Transmission Date: 20110411
  Serious: Yes (Other)
  Sender: FDA-Public Use
  Company Number: US-GENZYME-CLOF-1001225

PATIENT
  Sex: Female
  Weight: 80.1 kg

DRUGS (4)
  1. CLOLAR [Suspect]
     Indication: ACUTE MYELOID LEUKAEMIA
     Dosage: 30 MG/M2, QDX5
     Route: 042
     Dates: start: 20080604, end: 20080608
  2. GEMTUZUMAB OZOGAMICIN [Suspect]
     Indication: ACUTE MYELOID LEUKAEMIA
     Dosage: 3 MG/M2, QDX3 DAY 1, 4, AND 7
     Route: 042
     Dates: start: 20080604, end: 20080604
  3. GEMTUZUMAB OZOGAMICIN [Suspect]
     Dosage: 3 MG/M2, QD
     Route: 042
     Dates: start: 20080607, end: 20080607
  4. GEMTUZUMAB OZOGAMICIN [Suspect]
     Dosage: 3 MG/M2, QD
     Route: 042
     Dates: start: 20080610, end: 20080610

REACTIONS (1)
  - THROMBOCYTOPENIA [None]
